FAERS Safety Report 25810843 (Version 1)
Quarter: 2025Q3

REPORT INFORMATION
  Report Type: Spontaneous
  Country: PR (occurrence: PR)
  Receive Date: 20250917
  Receipt Date: 20250917
  Transmission Date: 20251020
  Serious: Yes (Other)
  Sender: ACCORD
  Company Number: PR-MLMSERVICE-20240412-PI024176-00106-1

PATIENT
  Age: 77 Year
  Sex: Male

DRUGS (1)
  1. CLOPIDOGREL [Suspect]
     Active Substance: CLOPIDOGREL BISULFATE
     Indication: Prophylaxis
     Route: 048

REACTIONS (2)
  - Neuropathy peripheral [Unknown]
  - Haematoma muscle [Unknown]
